FAERS Safety Report 12596668 (Version 2)
Quarter: 2016Q3

REPORT INFORMATION
  Report Type: Spontaneous
  Country: LK (occurrence: LK)
  Receive Date: 20160726
  Receipt Date: 20160804
  Transmission Date: 20161109
  Serious: Yes (Other)
  Sender: FDA-Public Use
  Company Number: LK-TEVA-679913USA

PATIENT
  Sex: Female

DRUGS (1)
  1. POSTINOR [Suspect]
     Active Substance: LEVONORGESTREL
     Indication: POST COITAL CONTRACEPTION
     Route: 065
     Dates: start: 20160708

REACTIONS (1)
  - Haemorrhage [Recovered/Resolved]
